FAERS Safety Report 8981857 (Version 4)
Quarter: 2014Q4

REPORT INFORMATION
  Report Type: Report from Study
  Country: US (occurrence: US)
  Receive Date: 20121223
  Receipt Date: 20141112
  Transmission Date: 20150529
  Serious: Yes (Hospitalization, Disabling)
  Sender: FDA-Public Use
  Company Number: PHEH2012US025068

PATIENT
  Age: 65 Year
  Sex: Female

DRUGS (5)
  1. SIMVASTATIN. [Concomitant]
     Active Substance: SIMVASTATIN
     Dosage: 20 UKN, QHS
     Route: 048
     Dates: start: 2012
  2. MYFORTIC [Suspect]
     Active Substance: MYCOPHENOLATE SODIUM
     Indication: RENAL TRANSPLANT
     Dosage: 3 DF (720 MG AM AND 360 MG PM), UNK
     Route: 048
     Dates: start: 2008
  3. LISINOPRIL. [Concomitant]
     Active Substance: LISINOPRIL
     Dosage: 20 UKN, QD
     Route: 048
     Dates: start: 2012
  4. MYFORTIC [Suspect]
     Active Substance: MYCOPHENOLATE SODIUM
     Dosage: UKN BID
     Route: 048
     Dates: start: 20120224
  5. HUMALOG [Concomitant]
     Active Substance: INSULIN LISPRO
     Indication: PRODUCT USED FOR UNKNOWN INDICATION
     Dosage: UNK
     Route: 065

REACTIONS (8)
  - Sensory loss [Unknown]
  - Fall [Unknown]
  - Gait disturbance [Unknown]
  - Vision blurred [Unknown]
  - Cerebrovascular accident [Recovering/Resolving]
  - Visual acuity reduced [Unknown]
  - Monoplegia [Recovering/Resolving]
  - Dizziness [Unknown]

NARRATIVE: CASE EVENT DATE: 20121115
